FAERS Safety Report 11050481 (Version 1)
Quarter: 2015Q2

REPORT INFORMATION
  Report Type: Spontaneous
  Country: US (occurrence: None)
  Receive Date: 20150420
  Receipt Date: 20150420
  Transmission Date: 20150821
  Serious: Yes (Other)
  Sender: FDA-Public Use
  Company Number: None

PATIENT
  Age: 40 Year
  Sex: Female
  Weight: 128.37 kg

DRUGS (13)
  1. VITAMIN E [Concomitant]
     Active Substance: .ALPHA.-TOCOPHEROL
  2. LASIX [Concomitant]
     Active Substance: FUROSEMIDE
  3. TUMERIC [Concomitant]
  4. BLACK WALNUT WORMWOOD TINCTURE [Concomitant]
  5. VITAMIN D [Concomitant]
     Active Substance: CHOLECALCIFEROL
  6. NODOZ [Concomitant]
     Active Substance: CAFFEINE
  7. VITAMIN A [Concomitant]
     Active Substance: VITAMIN A
  8. ACCUFLORA [Concomitant]
     Active Substance: UNSPECIFIED INGREDIENT
  9. NYSTATIN. [Suspect]
     Active Substance: NYSTATIN
     Indication: FUNGAL INFECTION
     Route: 048
     Dates: start: 20150318, end: 20150325
  10. LEVOTHYROXIN [Suspect]
     Active Substance: LEVOTHYROXINE
     Indication: HYPOTHYROIDISM
     Dosage: 112MCG/ 1 TABLET ONCE DAILY TAKEN BY MOUTH
     Route: 048
     Dates: start: 20080101, end: 20150401
  11. CALCIUM [Concomitant]
     Active Substance: CALCIUM
  12. CHLORTAB [Concomitant]
     Active Substance: CHLORPHENIRAMINE MALEATE
  13. MAGNESIUM CITRATE. [Concomitant]
     Active Substance: MAGNESIUM CITRATE

REACTIONS (9)
  - Dyspnoea [None]
  - Lethargy [None]
  - Weight increased [None]
  - Hypotension [None]
  - Confusional state [None]
  - Generalised oedema [None]
  - Dysuria [None]
  - Constipation [None]
  - Agitation [None]

NARRATIVE: CASE EVENT DATE: 20150307
